FAERS Safety Report 19025417 (Version 3)
Quarter: 2021Q4

REPORT INFORMATION
  Report Type: Report from Study
  Country: JP (occurrence: JP)
  Receive Date: 20210318
  Receipt Date: 20211130
  Transmission Date: 20220303
  Serious: Yes (Life-Threatening, Hospitalization, Other)
  Sender: FDA-Public Use
  Company Number: JP-CHUGAI-A2017025178ROCHE

PATIENT
  Age: 67 Year
  Sex: Male
  Weight: 59 kg

DRUGS (12)
  1. ERLOTINIB [Suspect]
     Active Substance: ERLOTINIB
     Indication: Non-small cell lung cancer
     Route: 048
     Dates: start: 20161121, end: 20170703
  2. ERLOTINIB [Suspect]
     Active Substance: ERLOTINIB
     Route: 048
     Dates: start: 20170704, end: 20170717
  3. MINOCYCLINE HYDROCHLORIDE [Concomitant]
     Active Substance: MINOCYCLINE HYDROCHLORIDE
     Indication: Product used for unknown indication
     Dosage: DOSAGE IS UNCERTAIN.
     Route: 048
     Dates: start: 20161205
  4. WHITE PETROLATUM [Concomitant]
     Active Substance: PETROLATUM
     Indication: Product used for unknown indication
     Dosage: DOSAGE IS UNCERTAIN.
     Route: 065
     Dates: start: 20170116
  5. LOCOID [Concomitant]
     Active Substance: HYDROCORTISONE BUTYRATE
     Indication: Product used for unknown indication
     Dosage: DOSAGE IS UNCERTAIN.
     Route: 003
     Dates: start: 20161201
  6. BETAMETHASONE DIPROPIONATE [Concomitant]
     Active Substance: BETAMETHASONE DIPROPIONATE
     Indication: Product used for unknown indication
     Dosage: DOSAGE IS UNCERTAIN.
     Route: 003
     Dates: start: 20161201
  7. FLUOCINONIDE [Concomitant]
     Active Substance: FLUOCINONIDE
     Indication: Product used for unknown indication
     Dosage: DOSAGE IS UNCERTAIN.
     Route: 065
     Dates: start: 20170313
  8. LURICUL VG [Concomitant]
     Indication: Product used for unknown indication
     Dosage: DOSAGE IS UNCERTAIN.
     Route: 065
     Dates: start: 20170315
  9. CHONDROITIN SULFATE (BOVINE) [Concomitant]
     Active Substance: CHONDROITIN SULFATE (BOVINE)
     Indication: Product used for unknown indication
     Dosage: DOSAGE IS UNCERTAIN.
     Route: 003
     Dates: start: 20170605
  10. Glycyron [Concomitant]
     Indication: Product used for unknown indication
     Dosage: DOSAGE IS UNCERTAIN.
     Route: 048
     Dates: start: 20170619
  11. URSODIOL [Concomitant]
     Active Substance: URSODIOL
     Indication: Product used for unknown indication
     Dosage: DOSAGE IS UNCERTAIN.
     Route: 048
     Dates: start: 20170619
  12. GENTAMICIN SULFATE [Concomitant]
     Active Substance: GENTAMICIN SULFATE
     Indication: Product used for unknown indication
     Dosage: DOSAGE IS UNCERTAIN.
     Route: 065
     Dates: start: 20170622

REACTIONS (5)
  - Embolism [Recovering/Resolving]
  - Haematuria [Not Recovered/Not Resolved]
  - Dermatitis acneiform [Not Recovered/Not Resolved]
  - Rash maculo-papular [Not Recovered/Not Resolved]
  - Toxic skin eruption [Recovered/Resolved]

NARRATIVE: CASE EVENT DATE: 20161211
